FAERS Safety Report 6048215-3 (Version None)
Quarter: 2009Q1

REPORT INFORMATION
  Report Type: 
  Country: None (occurrence: None)
  Receive Date: 20090123
  Receipt Date: 20090109
  Transmission Date: 20090719
  Serious: Yes (Hospitalization)
  Sender: FDA-Public Use
  Company Number: PHHO2007MX15048

PATIENT
  Sex: Female

DRUGS (4)
  1. DIOVAN HCT [Suspect]
     Indication: HYPERTENSION
     Dosage: 160/25MG DAILY
     Route: 048
     Dates: start: 20070701, end: 20070808
  2. ANTICOAGULANTS [Concomitant]
  3. DILACORON [Concomitant]
     Dosage: 5 MG, QD
     Dates: start: 20040101
  4. LANOXIN [Concomitant]
     Dosage: 1/2 TABLET EACH 3 DAYS
     Dates: start: 20040101

REACTIONS (3)
  - COAGULATION TIME SHORTENED [None]
  - HYPERGLYCAEMIA [None]
  - HYPERTENSION [None]
